FAERS Safety Report 23909684 (Version 1)
Quarter: 2024Q2

REPORT INFORMATION
  Report Type: Spontaneous
  Country: US (occurrence: US)
  Receive Date: 20240528
  Receipt Date: 20240528
  Transmission Date: 20240716
  Serious: Yes (Other)
  Sender: FDA-Public Use
  Company Number: US-TEVA-VS-3202872

PATIENT
  Age: 35 Year
  Sex: Female
  Weight: 142.88 kg

DRUGS (15)
  1. RIZATRIPTAN [Suspect]
     Active Substance: RIZATRIPTAN
     Indication: Prophylaxis
     Dosage: PRN
     Route: 048
     Dates: start: 2018
  2. METOPROLOL [Suspect]
     Active Substance: METOPROLOL
     Indication: Migraine prophylaxis
     Route: 048
     Dates: start: 202309
  3. NEUPOGEN [Concomitant]
     Active Substance: FILGRASTIM
     Indication: In vitro fertilisation
     Dosage: PREFILLED SYRINGE
     Dates: start: 20240227, end: 20240425
  4. FOLIC ACID [Concomitant]
     Active Substance: FOLIC ACID
     Indication: Inflammation
     Route: 048
     Dates: start: 20240425
  5. LEVOTHYROXINE [Concomitant]
     Active Substance: LEVOTHYROXINE\LEVOTHYROXINE SODIUM
     Indication: Inflammation
     Route: 048
     Dates: start: 20240520
  6. ENOXAPARIN [Concomitant]
     Active Substance: ENOXAPARIN
     Indication: In vitro fertilisation
     Dosage: PREFILLED SYRINGE
     Dates: start: 20240227
  7. ESTRACE [Concomitant]
     Active Substance: ESTRADIOL
     Indication: In vitro fertilisation
     Route: 067
     Dates: start: 20240227, end: 20240426
  8. ESTRACE [Concomitant]
     Active Substance: ESTRADIOL
     Indication: In vitro fertilisation
     Route: 048
     Dates: start: 20240227, end: 20240426
  9. METFORMIN [Concomitant]
     Active Substance: METFORMIN HYDROCHLORIDE
     Indication: In vitro fertilisation
     Route: 048
     Dates: start: 20240115, end: 20240510
  10. PROGESTERONE [Concomitant]
     Active Substance: PROGESTERONE
     Indication: In vitro fertilisation
     Dosage: PREFILLED SYRINGE
     Dates: start: 20240301, end: 20240426
  11. PREDNISONE [Concomitant]
     Active Substance: PREDNISONE
     Indication: In vitro fertilisation
     Route: 048
     Dates: start: 20240227, end: 20240503
  12. PROMETRIUM [Concomitant]
     Active Substance: PROGESTERONE
     Indication: In vitro fertilisation
     Route: 067
     Dates: start: 20240301, end: 20240510
  13. PROMETRIUM [Concomitant]
     Active Substance: PROGESTERONE
     Indication: In vitro fertilisation
     Route: 048
     Dates: start: 20240301, end: 20240510
  14. BENADRYL [Concomitant]
     Active Substance: DIPHENHYDRAMINE HYDROCHLORIDE
     Indication: Inflammation
     Route: 048
     Dates: start: 20240510
  15. ASPIRIN [Concomitant]
     Active Substance: ASPIRIN
     Indication: Inflammation
     Route: 048
     Dates: start: 20240510

REACTIONS (2)
  - Haemorrhage [Unknown]
  - Maternal exposure during pregnancy [Unknown]

NARRATIVE: CASE EVENT DATE: 20240101
